FAERS Safety Report 18420017 (Version 1)
Quarter: 2020Q4

REPORT INFORMATION
  Report Type: Spontaneous
  Country: US (occurrence: US)
  Receive Date: 20201023
  Receipt Date: 20201023
  Transmission Date: 20210114
  Serious: Yes (Hospitalization, Other)
  Sender: FDA-Public Use
  Company Number: US-AUROBINDO-AUR-APL-2018-006435

PATIENT
  Age: 47 Year
  Sex: Female

DRUGS (8)
  1. LEVOCETIRIZINE [Suspect]
     Active Substance: LEVOCETIRIZINE
     Indication: PRODUCT USED FOR UNKNOWN INDICATION
     Dosage: 2.5 MILLIGRAM PER MILLILETER
     Route: 065
  2. HYDROXYZINE [Suspect]
     Active Substance: HYDROXYZINE HYDROCHLORIDE
     Indication: PRODUCT USED FOR UNKNOWN INDICATION
     Dosage: 25 MG, UNK
     Route: 065
  3. DIPHENHYDRAMINE. [Suspect]
     Active Substance: DIPHENHYDRAMINE
     Indication: PRODUCT USED FOR UNKNOWN INDICATION
     Dosage: 12.5 MILLIGRAM PER 5 MILLILITER
     Route: 065
  4. CETIRIZINE [Suspect]
     Active Substance: CETIRIZINE HYDROCHLORIDE
     Indication: PRODUCT USED FOR UNKNOWN INDICATION
     Dosage: 1 MILLIGRAM PER MILLILETER
     Route: 065
  5. DOXEPIN [Suspect]
     Active Substance: DOXEPIN
     Indication: PRURITUS
     Dosage: 10 MILLIGRAM PER MILLILETER
     Route: 065
  6. HYDROXYZINE [Suspect]
     Active Substance: HYDROXYZINE HYDROCHLORIDE
     Dosage: 10 MG/ML, UNK
     Route: 065
  7. LORATADINE. [Suspect]
     Active Substance: LORATADINE
     Indication: PRODUCT USED FOR UNKNOWN INDICATION
     Dosage: 5 MILLIGRAM PER MILLILETER
     Route: 065
  8. FEXOFENADINE [Suspect]
     Active Substance: FEXOFENADINE HYDROCHLORIDE
     Indication: RHINITIS ALLERGIC
     Dosage: 30 MILLIGRAM PER MILLILETER
     Route: 065

REACTIONS (10)
  - Oedema mucosal [Unknown]
  - Pruritus [Unknown]
  - Cough [Recovering/Resolving]
  - Bronchospasm [Recovering/Resolving]
  - Dyspnoea [Unknown]
  - Eosinophilia [Unknown]
  - Hypersensitivity [Recovering/Resolving]
  - Blood pressure increased [Recovering/Resolving]
  - Eczema [Unknown]
  - Heart rate increased [Recovering/Resolving]
